FAERS Safety Report 5266635-1 (Version None)
Quarter: 2007Q1

REPORT INFORMATION
  Report Type: 
  Country: None (occurrence: None)
  Receive Date: 20070312
  Receipt Date: 20070226
  Transmission Date: 20070707
  Serious: Yes (Hospitalization, Other)
  Sender: FDA-Public Use
  Company Number: 237481

PATIENT
  Age: 46 Year
  Sex: Female
  Weight: 80 kg

DRUGS (5)
  1. XOLAIR [Suspect]
     Indication: ASTHMA
     Dosage: 225 MG, 2/WEEK, SUBCUTANEOUS
     Route: 058
  2. SOLUPRED (PREDNISOLONE) [Concomitant]
  3. PULMICORT [Concomitant]
  4. BRICANYL [Concomitant]
  5. BAMBUTEROL (BAMBUTEROL) [Concomitant]

REACTIONS (7)
  - DISEASE RECURRENCE [None]
  - HERPES ZOSTER [None]
  - PHARYNGITIS [None]
  - PHLEBITIS [None]
  - POLYARTHRITIS [None]
  - SUBILEUS [None]
  - URTICARIA [None]
